FAERS Safety Report 4299973-X (Version None)
Quarter: 2004Q1

REPORT INFORMATION
  Report Type: 
  Country: None (occurrence: None)
  Receive Date: 20040218
  Receipt Date: 20040206
  Transmission Date: 20041129
  Serious: Yes (Hospitalization)
  Sender: FDA-Public Use
  Company Number: A001-319-584

PATIENT
  Age: 82 Year
  Sex: Female
  Weight: 75.8 kg

DRUGS (2)
  1. DONEPEZIL HCL [Suspect]
     Indication: VASCULAR DEMENTIA
     Dosage: 5 MG, 1 IN 1 D, ORAL
     Route: 048
     Dates: start: 20030925, end: 20040127
  2. PENTAERYTHIRITOL TETRANITRATE TAB [Concomitant]

REACTIONS (4)
  - AMNESIA [None]
  - CONDITION AGGRAVATED [None]
  - DELUSION [None]
  - PSYCHOTIC DISORDER [None]
